FAERS Safety Report 5878403-8 (Version None)
Quarter: 2008Q3

REPORT INFORMATION
  Report Type: 
  Country: None (occurrence: None)
  Receive Date: 20080911
  Receipt Date: 20080901
  Transmission Date: 20090109
  Serious: Yes (Hospitalization)
  Sender: FDA-Public Use
  Company Number: JP-PFIZER INC-2008075478

PATIENT
  Sex: Male

DRUGS (10)
  1. MIGLITOL TABLET [Suspect]
     Indication: TYPE 2 DIABETES MELLITUS
     Dosage: DAILY DOSE:150MG
     Route: 048
     Dates: start: 20080519
  2. AMARYL [Concomitant]
     Indication: TYPE 2 DIABETES MELLITUS
     Route: 048
  3. MECOBALAMIN [Concomitant]
     Route: 048
     Dates: start: 20051226
  4. KETAS [Concomitant]
     Route: 048
     Dates: start: 20051226
  5. NEUROVITAN [Concomitant]
     Dosage: TEXT:3DF
     Route: 048
     Dates: start: 20051226
  6. ADETPHOS [Concomitant]
     Route: 048
     Dates: start: 20051226
  7. IBURONOL [Concomitant]
     Route: 048
     Dates: start: 20051226
  8. BUFFERIN [Concomitant]
     Route: 048
     Dates: start: 20051226
  9. ENALAPRIL MALEATE [Concomitant]
     Route: 048
     Dates: start: 20051226
  10. SALIPEX [Concomitant]
     Route: 048
     Dates: start: 20051226

REACTIONS (2)
  - HYPOGLYCAEMIA [None]
  - LEUKAEMIA [None]
